FAERS Safety Report 7290761-9 (Version None)
Quarter: 2011Q1

REPORT INFORMATION
  Report Type: 
  Country: None (occurrence: None)
  Receive Date: 20110214
  Receipt Date: 20110207
  Transmission Date: 20110831
  Serious: Yes (Other)
  Sender: FDA-Public Use
  Company Number: FR-ROCHE-758186

PATIENT

DRUGS (3)
  1. TELAPREVIR [Suspect]
     Indication: HEPATITIS C
     Dosage: END OF STUDY UNBLINDING, TELAPREVIR
     Route: 065
  2. RIBAVIRIN [Suspect]
     Indication: HEPATITIS C
     Dosage: FOR 15 DAYS WITH BLINDED TELAPREVIR AND BLINDED PEGALFA2A SUBSEQUENTLYCONTINUED TO COMPLETE 48 WEEKS
     Route: 065
  3. PEGINTERFERON ALFA-2A [Suspect]
     Indication: HEPATITIS C
     Dosage: FOR 15 DAYS WITH BLINDED TELAPREVIR AND BLINDED RIBAVIRIN SUBSEQUENTLYCONTINUED TO COMPLETE 48 WEEKS
     Route: 065

REACTIONS (1)
  - CHOLECYSTITIS [None]
